FAERS Safety Report 9612547 (Version 4)
Quarter: 2014Q1

REPORT INFORMATION
  Report Type: Spontaneous
  Country: JP (occurrence: JP)
  Receive Date: 20131010
  Receipt Date: 20140219
  Transmission Date: 20141002
  Serious: Yes (Life-Threatening, Hospitalization, Other)
  Sender: FDA-Public Use
  Company Number: JP-009507513-1310JPN002764

PATIENT
  Age: 49 Year
  Sex: Female
  Weight: 63 kg

DRUGS (2)
  1. MARVELON 28 [Suspect]
     Indication: MENSTRUATION IRREGULAR
     Dosage: ONE TABLET ONCE A DAY
     Route: 048
     Dates: start: 201206, end: 20120828
  2. MARVELON 28 [Suspect]
     Indication: CONTRACEPTION

REACTIONS (4)
  - Dyspnoea [Recovering/Resolving]
  - Chest discomfort [Recovering/Resolving]
  - Pulmonary embolism [Recovering/Resolving]
  - Deep vein thrombosis [Recovering/Resolving]
